FAERS Safety Report 8602813 (Version 2)
Quarter: 2013Q1

REPORT INFORMATION
  Report Type: Spontaneous
  Country: DK (occurrence: DK)
  Receive Date: 20120607
  Receipt Date: 20130201
  Transmission Date: 20140127
  Serious: Yes (Death, Disabling, Other)
  Sender: FDA-Public Use
  Company Number: DK-ASTRAZENECA-2012SE34513

PATIENT
  Age: 75 Year
  Sex: Female
  Weight: 75 kg

DRUGS (6)
  1. BRILIQUE [Suspect]
     Indication: THROMBOSIS PROPHYLAXIS
     Route: 048
     Dates: start: 20120319
  2. ASPIRIN [Interacting]
     Indication: ANTICOAGULANT THERAPY
     Route: 065
     Dates: start: 20120221, end: 20120817
  3. ZARATOR [Interacting]
     Indication: HYPERCHOLESTEROLAEMIA
     Route: 065
     Dates: start: 20120321, end: 201208
  4. CENTYL MED KALIUMKLORID [Concomitant]
     Indication: OEDEMA
     Dates: start: 20100909, end: 20120220
  5. LYRICA [Concomitant]
     Indication: PAIN
     Dates: start: 20120202, end: 20120809
  6. NITROGLYCERIN [Concomitant]
     Indication: CHEST PAIN
     Dates: start: 20120222, end: 201204

REACTIONS (7)
  - Drug interaction [Recovered/Resolved]
  - Death [Fatal]
  - Dementia [Recovering/Resolving]
  - Lung neoplasm malignant [Unknown]
  - Dizziness [Recovering/Resolving]
  - Haematoma [Recovering/Resolving]
  - Oedema [Unknown]
